FAERS Safety Report 17362102 (Version 2)
Quarter: 2020Q3

REPORT INFORMATION
  Report Type: Spontaneous
  Country: US (occurrence: US)
  Receive Date: 20200203
  Receipt Date: 20200921
  Transmission Date: 20201102
  Serious: Yes (Other)
  Sender: FDA-Public Use
  Company Number: US-CATALYST PHARMACEUTICALS, INC-2020CAT00033

PATIENT
  Age: 68 Year
  Sex: Female
  Weight: 72.56 kg

DRUGS (8)
  1. FIRDAPSE [Suspect]
     Active Substance: AMIFAMPRIDINE PHOSPHATE
     Dosage: 60 MG
     Route: 048
     Dates: start: 201903, end: 2019
  2. FIRDAPSE [Suspect]
     Active Substance: AMIFAMPRIDINE PHOSPHATE
     Dosage: 65 MG
     Dates: start: 2019, end: 2019
  3. FIRDAPSE [Suspect]
     Active Substance: AMIFAMPRIDINE PHOSPHATE
     Dosage: 20 MG, 4X/DAY
     Route: 048
     Dates: start: 2019
  4. AMANTADINE. [Concomitant]
     Active Substance: AMANTADINE HYDROCHLORIDE
  5. FIRDAPSE [Suspect]
     Active Substance: AMIFAMPRIDINE PHOSPHATE
     Dosage: UNK
     Route: 048
     Dates: start: 2017
  6. FIRDAPSE [Suspect]
     Active Substance: AMIFAMPRIDINE PHOSPHATE
     Dosage: 20 MG, 4X/DAY
     Route: 048
  7. CLONAZEPAM. [Concomitant]
     Active Substance: CLONAZEPAM
  8. BACLOFEN. [Concomitant]
     Active Substance: BACLOFEN

REACTIONS (10)
  - Burning sensation [Unknown]
  - Visual impairment [Unknown]
  - Hair colour changes [Unknown]
  - Syncope [Recovered/Resolved]
  - Abdominal pain upper [Unknown]
  - Muscular weakness [Unknown]
  - Paraesthesia [Unknown]
  - Orthostatic hypotension [Unknown]
  - Hypoaesthesia [Unknown]
  - Limb discomfort [Unknown]

NARRATIVE: CASE EVENT DATE: 201911
